FAERS Safety Report 7565210-3 (Version None)
Quarter: 2011Q2

REPORT INFORMATION
  Report Type: 
  Country: None (occurrence: None)
  Receive Date: 20110622
  Receipt Date: 20110607
  Transmission Date: 20111010
  Serious: Yes (Other)
  Sender: FDA-Public Use
  Company Number: PL-GENENTECH-320192

PATIENT
  Age: 46 Year
  Sex: Male

DRUGS (1)
  1. RITUXAN [Suspect]
     Indication: B-CELL LYMPHOMA
     Dosage: UNK
     Route: 065
     Dates: start: 20100831

REACTIONS (6)
  - ARRHYTHMIA [None]
  - PROSTATOMEGALY [None]
  - TROPONIN INCREASED [None]
  - LYMPHADENOPATHY [None]
  - BONE MARROW DISORDER [None]
  - VENOUS THROMBOSIS LIMB [None]
